FAERS Safety Report 20867645 (Version 1)
Quarter: 2022Q2

REPORT INFORMATION
  Report Type: Spontaneous
  Country: US (occurrence: None)
  Receive Date: 20220523
  Receipt Date: 20220523
  Transmission Date: 20220720
  Serious: Yes (Other)
  Sender: FDA-Public Use
  Company Number: None

PATIENT
  Sex: 0

DRUGS (2)
  1. .DELTA.8-TETRAHYDROCANNABINOL\CANNABIDIOL\HERBALS [Suspect]
     Active Substance: .DELTA.8-TETRAHYDROCANNABINOL\CANNABIDIOL\HERBALS
     Indication: Anxiety
     Dosage: OTHER QUANTITY : 8 GUMMY SQUARE;?OTHER FREQUENCY : AS NEEDED;?
     Route: 048
     Dates: start: 20220518, end: 20220522
  2. .DELTA.8-TETRAHYDROCANNABINOL\CANNABIDIOL\HERBALS [Suspect]
     Active Substance: .DELTA.8-TETRAHYDROCANNABINOL\CANNABIDIOL\HERBALS
     Indication: Post-traumatic stress disorder

REACTIONS (5)
  - Impaired driving ability [None]
  - Drug level above therapeutic [None]
  - Mobility decreased [None]
  - Toxicity to various agents [None]
  - Product use in unapproved indication [None]

NARRATIVE: CASE EVENT DATE: 20220518
